FAERS Safety Report 9685318 (Version 2)
Quarter: 2013Q4

REPORT INFORMATION
  Report Type: Spontaneous
  Country: JP (occurrence: JP)
  Receive Date: 20131113
  Receipt Date: 20131125
  Transmission Date: 20140711
  Serious: Yes (Hospitalization)
  Sender: FDA-Public Use
  Company Number: JP-JNJFOC-20131105764

PATIENT
  Age: 61 Year
  Sex: Male

DRUGS (7)
  1. REMICADE [Suspect]
     Indication: PSORIATIC ARTHROPATHY
     Dosage: FIRST CYCLE
     Route: 042
     Dates: start: 201204
  2. REMICADE [Suspect]
     Indication: PSORIATIC ARTHROPATHY
     Dosage: SECOND CYCLE
     Route: 042
     Dates: start: 2012, end: 2012
  3. METHOTREXATE [Suspect]
     Indication: PSORIASIS
     Route: 065
     Dates: start: 201108, end: 2012
  4. VITAMIN [Concomitant]
     Indication: PSORIASIS
     Route: 065
  5. UNKNOWN ADRENAL HORMONE PREPARATIONS [Concomitant]
     Indication: PSORIASIS
     Route: 065
  6. DIOVAN [Concomitant]
     Indication: HYPERTENSION
     Route: 048
  7. NORVASC [Concomitant]
     Indication: HYPERTENSION
     Route: 048

REACTIONS (1)
  - Pneumocystis jirovecii pneumonia [Recovering/Resolving]
